FAERS Safety Report 4345271-5 (Version None)
Quarter: 2004Q2

REPORT INFORMATION
  Report Type: 
  Country: None (occurrence: None)
  Receive Date: 20040423
  Receipt Date: 20040413
  Transmission Date: 20050107
  Serious: Yes (Hospitalization)
  Sender: FDA-Public Use
  Company Number: PHBS2004DE04996

PATIENT
  Age: 55 Year
  Sex: Female

DRUGS (5)
  1. CLOZAPINE [Suspect]
     Indication: SCHIZOPHRENIA
     Dosage: 200 MG/D
     Route: 065
  2. CLOZAPINE [Suspect]
     Dosage: 200 TO 500 MG/D
     Route: 065
  3. CLOZAPINE [Suspect]
     Dosage: 200 MG/D
     Route: 065
  4. CLOZAPINE [Suspect]
     Dosage: 50 MG/D
     Route: 065
  5. CLOZAPINE [Suspect]
     Dosage: 300 MG/D
     Route: 065

REACTIONS (11)
  - ANTINUCLEAR ANTIBODY POSITIVE [None]
  - ARTHRALGIA [None]
  - HAEMOLYTIC ANAEMIA [None]
  - MUSCLE INJURY [None]
  - MYALGIA [None]
  - NEUROLEPTIC MALIGNANT SYNDROME [None]
  - PERICARDIAL EFFUSION [None]
  - PLEURAL EFFUSION [None]
  - RED BLOOD CELL SEDIMENTATION RATE INCREASED [None]
  - SKIN DISORDER [None]
  - SYSTEMIC LUPUS ERYTHEMATOSUS [None]
